FAERS Safety Report 24245562 (Version 4)
Quarter: 2024Q4

REPORT INFORMATION
  Report Type: Report from Study
  Country: CA (occurrence: CA)
  Receive Date: 20240824
  Receipt Date: 20241120
  Transmission Date: 20250115
  Serious: Yes (Other)
  Sender: ABBVIE
  Company Number: CA-ABBVIE-5889189

PATIENT
  Sex: Female

DRUGS (6)
  1. BOTOX [Suspect]
     Active Substance: ONABOTULINUMTOXINA
     Indication: Migraine
     Dosage: TIME INTERVAL: AS NECESSARY: FREQUENCY- EVERY 3 MONTHS
     Route: 030
     Dates: start: 202405, end: 202405
  2. BOTOX [Suspect]
     Active Substance: ONABOTULINUMTOXINA
     Indication: Migraine
     Dosage: TIME INTERVAL: AS NECESSARY: FREQUENCY- EVERY 3 MONTHS
     Route: 030
     Dates: start: 2024, end: 2024
  3. ZESTRIL [Concomitant]
     Active Substance: LISINOPRIL
     Indication: Product used for unknown indication
  4. PANTOPRAZOLE SODIUM [Concomitant]
     Active Substance: PANTOPRAZOLE SODIUM
     Indication: Product used for unknown indication
     Route: 048
  5. LAMOTRIGINE [Concomitant]
     Active Substance: LAMOTRIGINE
     Indication: Product used for unknown indication
  6. SPIRONOLACTONE [Concomitant]
     Active Substance: SPIRONOLACTONE
     Indication: Product used for unknown indication

REACTIONS (11)
  - Pharyngeal disorder [Recovered/Resolved]
  - Injection site nerve damage [Unknown]
  - Dysphagia [Unknown]
  - Dysarthria [Unknown]
  - Wrong technique in product usage process [Unknown]
  - Tongue paralysis [Unknown]
  - Pulmonary function test abnormal [Unknown]
  - Fatigue [Unknown]
  - Injection site extravasation [Unknown]
  - Palatal disorder [Unknown]
  - Injection site injury [Unknown]

NARRATIVE: CASE EVENT DATE: 20240501
